FAERS Safety Report 9174766 (Version 2)
Quarter: 2013Q2

REPORT INFORMATION
  Report Type: Spontaneous
  Country: JP (occurrence: JP)
  Receive Date: 20130320
  Receipt Date: 20130521
  Transmission Date: 20140414
  Serious: Yes (Other)
  Sender: FDA-Public Use
  Company Number: JP-ELI_LILLY_AND_COMPANY-JP201302009485

PATIENT
  Age: 41 Year
  Sex: Male

DRUGS (3)
  1. STRATTERA [Suspect]
     Indication: ATTENTION DEFICIT/HYPERACTIVITY DISORDER
     Dosage: 40 MG, QD
     Route: 048
     Dates: start: 20130110, end: 20130222
  2. STRATTERA [Suspect]
     Dosage: 40 MG, QD
     Route: 048
  3. CYANAMIDE [Concomitant]
     Indication: ALCOHOLISM
     Dosage: 7 ML, UNK
     Route: 065
     Dates: start: 20130131, end: 20130222

REACTIONS (4)
  - Local swelling [Recovered/Resolved]
  - Rash erythematous [Recovered/Resolved]
  - Pyrexia [Recovered/Resolved]
  - Rubella [Recovered/Resolved]
